FAERS Safety Report 13792024 (Version 1)
Quarter: 2017Q3

REPORT INFORMATION
  Report Type: Spontaneous
  Country: US (occurrence: US)
  Receive Date: 20170725
  Receipt Date: 20170725
  Transmission Date: 20171127
  Serious: Yes (Other)
  Sender: FDA-Public Use
  Company Number: US-ROCHE-21989

PATIENT
  Sex: Female

DRUGS (1)
  1. TORADOL [Suspect]
     Active Substance: KETOROLAC TROMETHAMINE
     Indication: PRODUCT USED FOR UNKNOWN INDICATION
     Route: 030
     Dates: start: 199012, end: 199012

REACTIONS (4)
  - Post procedural haemorrhage [Unknown]
  - Haematoma evacuation [Unknown]
  - Wound secretion [Unknown]
  - Haematoma [Unknown]

NARRATIVE: CASE EVENT DATE: 199012
